FAERS Safety Report 5173216-7 (Version None)
Quarter: 2006Q4

REPORT INFORMATION
  Report Type: 
  Country: None (occurrence: None)
  Receive Date: 20061214
  Receipt Date: 20050119
  Transmission Date: 20070319
  Serious: Yes (Life-Threatening)
  Sender: FDA-Public Use
  Company Number: 2005AP00325

PATIENT
  Age: 51 Year
  Sex: Female

DRUGS (6)
  1. IRESSA [Suspect]
     Indication: LUNG ADENOCARCINOMA
     Route: 048
     Dates: start: 20021224, end: 20040203
  2. PACLITAXEL [Concomitant]
     Dosage: 3 COURSES WITH CARBOPLATIN
     Dates: start: 20020909
  3. PACLITAXEL [Concomitant]
     Dosage: 3 COURSES WITH CARBOPLATIN
     Dates: start: 20021105, end: 20021127
  4. CARBOPLATIN [Concomitant]
     Dosage: 3 COURSES WITH PACLITAXEL
     Dates: start: 20020909
  5. CARBOPLATIN [Concomitant]
     Dosage: 3 COURSES WITH PACLITAXEL
     Dates: start: 20021105, end: 20021127
  6. RADIOTHERAPY [Concomitant]
     Dosage: 40 GY AND 20 GY TO CHEST
     Dates: start: 20010801

REACTIONS (1)
  - ACUTE PROMYELOCYTIC LEUKAEMIA [None]
